FAERS Safety Report 19948916 (Version 1)
Quarter: 2021Q4

REPORT INFORMATION
  Report Type: Spontaneous
  Country: US (occurrence: US)
  Receive Date: 20211012
  Receipt Date: 20211012
  Transmission Date: 20220304
  Serious: Yes (Other)
  Sender: FDA-Public Use
  Company Number: None

PATIENT
  Age: 45 Year
  Sex: Male
  Weight: 106 kg

DRUGS (9)
  1. BARICITINIB [Suspect]
     Active Substance: BARICITINIB
     Indication: COVID-19
     Route: 048
     Dates: start: 20211002, end: 20211008
  2. AZITHROMYCIN ANHYDROUS [Concomitant]
     Active Substance: AZITHROMYCIN ANHYDROUS
     Dates: start: 20211004, end: 20211010
  3. ceftriazone [Concomitant]
     Dates: start: 20211002, end: 20211009
  4. DEXAMETHASONE [Concomitant]
     Active Substance: DEXAMETHASONE
     Dates: start: 20211002, end: 20211010
  5. dexmtromorphan-guaifenesin [Concomitant]
     Dates: start: 20211008, end: 20211008
  6. ENOXAPARIN [Concomitant]
     Active Substance: ENOXAPARIN
     Dates: start: 20211002, end: 20211010
  7. REMDESIVIR [Concomitant]
     Active Substance: REMDESIVIR
     Dates: start: 20211001, end: 20211006
  8. APAP [Concomitant]
     Active Substance: ACETAMINOPHEN
     Dates: start: 20211003, end: 20211007
  9. LACTATED RINGERS SOLUTION [Concomitant]
     Active Substance: CALCIUM CHLORIDE\POTASSIUM CHLORIDE\SODIUM CHLORIDE\SODIUM LACTATE
     Dates: start: 20211005, end: 20211005

REACTIONS (1)
  - Aspartate aminotransferase increased [None]

NARRATIVE: CASE EVENT DATE: 20211008
